FAERS Safety Report 9229106 (Version 1)
Quarter: 2013Q2

REPORT INFORMATION
  Report Type: Spontaneous
  Country: US (occurrence: US)
  Receive Date: 20130412
  Receipt Date: 20130412
  Transmission Date: 20140414
  Serious: Yes (Other)
  Sender: FDA-Public Use
  Company Number: US-ASTRAZENECA-2013SE22110

PATIENT
  Age: 69 Year
  Sex: Female
  Weight: 77.1 kg

DRUGS (6)
  1. SYMBICORT [Suspect]
     Indication: CHRONIC OBSTRUCTIVE PULMONARY DISEASE
     Dosage: 160, 2 PUFFS BID
     Route: 055
  2. VENTOLIN [Concomitant]
     Indication: CHRONIC OBSTRUCTIVE PULMONARY DISEASE
     Dosage: 2 PUFFS BID
     Route: 050
  3. ALLERGY SHOTS [Concomitant]
  4. IBUPROFEN [Concomitant]
     Indication: PAIN
     Dosage: UNKNONW DOSE AS REQUIRED
     Route: 048
  5. TYLENOL [Concomitant]
     Indication: PAIN
     Dosage: UNKNONW DOSE AS REQUIRED
     Route: 048
  6. STEROID [Concomitant]
     Indication: CHRONIC OBSTRUCTIVE PULMONARY DISEASE
     Route: 048

REACTIONS (5)
  - Cataract [Unknown]
  - Retinal vein occlusion [Unknown]
  - Visual impairment [Unknown]
  - Blindness [Unknown]
  - Visual impairment [Unknown]
